FAERS Safety Report 5358422-0 (Version None)
Quarter: 2007Q2

REPORT INFORMATION
  Report Type: 
  Country: None (occurrence: None)
  Receive Date: 20070530
  Receipt Date: 20061205
  Transmission Date: 20071010
  Serious: Yes (Other)
  Sender: FDA-Public Use
  Company Number: US200512001767

PATIENT
  Age: 68 Year
  Sex: Male
  Weight: 52.2 kg

DRUGS (4)
  1. ZYPREXA [Suspect]
     Indication: DEPRESSION
     Dates: start: 20031111, end: 20040101
  2. FOLIC ACID [Concomitant]
  3. VITAMIN B-12 (CYANOCOBALAMIN, PYRIDOXINE HYDROCHLORIDE, THIAMINE HYDRO [Concomitant]
  4. COQ10 /USA/ (UBIDECARENONE) [Concomitant]

REACTIONS (3)
  - ABDOMINAL PAIN UPPER [None]
  - CONFUSIONAL STATE [None]
  - PANCREATITIS [None]
